FAERS Safety Report 20670883 (Version 1)
Quarter: 2022Q2

REPORT INFORMATION
  Report Type: Spontaneous
  Country: TR (occurrence: TR)
  Receive Date: 20220404
  Receipt Date: 20220404
  Transmission Date: 20220721
  Serious: Yes (Hospitalization, Other)
  Sender: FDA-Public Use
  Company Number: TR-JAZZ-2022-TR-010116

PATIENT
  Age: 25 Year
  Sex: Male

DRUGS (1)
  1. ASPARAGINASE [Suspect]
     Active Substance: ASPARAGINASE
     Indication: T-cell type acute leukaemia
     Dosage: 10000 UNITS

REACTIONS (5)
  - Superior sagittal sinus thrombosis [Recovering/Resolving]
  - Confusional state [Recovering/Resolving]
  - Headache [Unknown]
  - Nausea [Unknown]
  - Vomiting [Unknown]
